FAERS Safety Report 5101354-3 (Version None)
Quarter: 2006Q3

REPORT INFORMATION
  Report Type: 
  Country: None (occurrence: None)
  Receive Date: 20060906
  Receipt Date: 20060810
  Transmission Date: 20061208
  Serious: Yes (Hospitalization)
  Sender: FDA-Public Use
  Company Number: 2006071772

PATIENT
  Age: 76 Year
  Sex: Male

DRUGS (6)
  1. ESTRACYT (ESTRAMUSTINE PHOSPHATE SODIUM) [Suspect]
     Indication: PROSTATIC SPECIFIC ANTIGEN INCREASED
     Dosage: 560 MG, ORAL
     Route: 048
     Dates: start: 20060404, end: 20060412
  2. DIFENIDOL HYDROCHLORIDE (DIFENIDOL HYDROCHLORIDE) [Suspect]
     Indication: DRUG USE FOR UNKNOWN INDICATION
     Dosage: 25 MG, ORAL
     Route: 048
     Dates: start: 20050201
  3. BICALUTAMIDE [Suspect]
     Indication: PROSTATE CANCER RECURRENT
     Dosage: 80 MG, ORAL
     Route: 048
     Dates: start: 20040217
  4. ETIZOLAM (ETIZOLAM) [Suspect]
     Indication: DRUG USE FOR UNKNOWN INDICATION
     Dosage: 0.5 MG, ORAL
     Route: 048
     Dates: start: 20050201
  5. KALLIDINOGENASE (KALLIDINOGENASE) [Suspect]
     Indication: DRUG USE FOR UNKNOWN INDICATION
     Dosage: 25 MG, ORAL
     Route: 048
     Dates: start: 20050201
  6. EPINASTINE HYDROCHLORIDE (EPINASTINE HYDROCHLORIDE) [Suspect]
     Indication: DRUG USE FOR UNKNOWN INDICATION
     Dosage: 20 MG, ORAL
     Route: 048
     Dates: start: 20050201

REACTIONS (2)
  - CONJUNCTIVITIS [None]
  - ERYTHEMA MULTIFORME [None]
